FAERS Safety Report 7270618-X (Version None)
Quarter: 2011Q1

REPORT INFORMATION
  Report Type: 
  Country: None (occurrence: None)
  Receive Date: 20110202
  Receipt Date: 20110124
  Transmission Date: 20110831
  Serious: Yes (Hospitalization, Congenital Anomaly)
  Sender: FDA-Public Use
  Company Number: A0882522A

PATIENT
  Sex: Female

DRUGS (6)
  1. ROCEPHIN [Concomitant]
     Route: 064
  2. ALLEGRA [Concomitant]
     Route: 064
  3. CLARINEX [Concomitant]
     Route: 064
  4. AUGMENTIN XR [Concomitant]
     Route: 064
  5. PAXIL [Suspect]
     Route: 064
  6. ZITHROMAX [Concomitant]
     Route: 064

REACTIONS (2)
  - VENTRICULAR SEPTAL DEFECT [None]
  - DRUG EXPOSURE DURING PREGNANCY [None]
